FAERS Safety Report 10755582 (Version 1)
Quarter: 2015Q1

REPORT INFORMATION
  Report Type: Spontaneous
  Country: US (occurrence: None)
  Receive Date: 20150123
  Receipt Date: 20150123
  Transmission Date: 20150721
  Serious: Yes (Hospitalization)
  Sender: FDA-Public Use
  Company Number: 2014TUS006967

PATIENT
  Age: 18 Year
  Sex: Male
  Weight: 85.7 kg

DRUGS (2)
  1. CORTICOSTEROIDS [Concomitant]
     Active Substance: CORTICOSTEROID NOS
  2. ENTYVIO [Suspect]
     Active Substance: VEDOLIZUMAB
     Indication: CROHN^S DISEASE
     Dosage: FIRST DOSE, INTRAVENOUS
     Route: 042
     Dates: start: 201406, end: 201406

REACTIONS (2)
  - Dermatitis infected [None]
  - Dermatosis [None]

NARRATIVE: CASE EVENT DATE: 20140714
